FAERS Safety Report 5342357-3 (Version None)
Quarter: 2007Q2

REPORT INFORMATION
  Report Type: 
  Country: None (occurrence: None)
  Receive Date: 20070601
  Receipt Date: 20070524
  Transmission Date: 20071010
  Serious: Yes (Other)
  Sender: FDA-Public Use
  Company Number: BR-PFIZER INC-2007042569

PATIENT
  Age: 22 Year
  Sex: Female

DRUGS (4)
  1. FRONTAL [Suspect]
     Route: 048
  2. ALL OTHER THERAPEUTIC PRODUCTS [Concomitant]
  3. ZELMAC [Concomitant]
     Route: 048
  4. LANSOPRAZOLE [Concomitant]
     Route: 048

REACTIONS (3)
  - DRUG DEPENDENCE [None]
  - SOCIAL AVOIDANT BEHAVIOUR [None]
  - UNEVALUABLE EVENT [None]
